FAERS Safety Report 7334456-1 (Version None)
Quarter: 2011Q1

REPORT INFORMATION
  Report Type: 
  Country: None (occurrence: None)
  Receive Date: 20110222
  Receipt Date: 20110208
  Transmission Date: 20110831
  Serious: Yes (Life-Threatening, Other)
  Sender: FDA-Public Use
  Company Number: GB-DEXPHARM-20110163

PATIENT
  Age: 74 Year
  Sex: Male

DRUGS (5)
  1. INSTILLAGEL ACTIVE SUBSTANCES: CHLORHEXIDINE DIGLUCONATE: CHLOREHEXIDI [Suspect]
     Indication: BLADDER CATHETERISATION
  2. ROPOFOL [Concomitant]
  3. ATRACURIUM BESYLATE [Concomitant]
  4. LABETALOL HCL [Concomitant]
  5. REMIFERNTANIL [Concomitant]

REACTIONS (6)
  - BLOOD PRESSURE SYSTOLIC DECREASED [None]
  - SKIN TEST POSITIVE [None]
  - OXYGEN SATURATION DECREASED [None]
  - ANAPHYLACTIC REACTION [None]
  - HAEMODYNAMIC INSTABILITY [None]
  - PROCEDURAL COMPLICATION [None]
